FAERS Safety Report 21353940 (Version 1)
Quarter: 2022Q3

REPORT INFORMATION
  Report Type: Spontaneous
  Country: GB (occurrence: GB)
  Receive Date: 20220920
  Receipt Date: 20220920
  Transmission Date: 20221026
  Serious: Yes (Other)
  Sender: FDA-Public Use
  Company Number: None

PATIENT
  Age: 84 Year
  Sex: Female
  Weight: 64 kg

DRUGS (13)
  1. SPIRONOLACTONE [Suspect]
     Active Substance: SPIRONOLACTONE
     Indication: Product used for unknown indication
     Dosage: MORNING
     Dates: start: 20220713
  2. BETAHISTINE [Concomitant]
     Active Substance: BETAHISTINE
     Indication: Balance disorder
     Dates: start: 20220809
  3. BISOPROLOL [Concomitant]
     Active Substance: BISOPROLOL
     Dates: start: 20220627
  4. CO-AMILOFRUSE [Concomitant]
     Active Substance: AMILORIDE\FUROSEMIDE
     Dosage: MORNING
     Dates: start: 20220510, end: 20220713
  5. CONOTRANE [Concomitant]
     Dosage: APPLY TO AFFECTED AREAS AS NEEDED AS A BARRIER
     Dates: start: 20220524, end: 20220719
  6. EDOXABAN [Concomitant]
     Active Substance: EDOXABAN
     Dosage: THIS IS AN ANTICOAGULANT
     Dates: start: 20220510
  7. BUTYLSCOPOLAMINE BROMIDE [Concomitant]
     Active Substance: BUTYLSCOPOLAMINE BROMIDE
     Dosage: INCREASING T
     Dates: start: 20220510
  8. LOPERAMIDE [Concomitant]
     Active Substance: LOPERAMIDE
     Indication: Irritable bowel syndrome
     Dates: start: 20220510
  9. OMEPRAZOLE [Concomitant]
     Active Substance: OMEPRAZOLE
     Indication: Dyspepsia
     Dates: start: 20220510
  10. ACETAMINOPHEN [Concomitant]
     Active Substance: ACETAMINOPHEN
     Dates: start: 20220510
  11. PROCHLORPERAZINE [Concomitant]
     Active Substance: PROCHLORPERAZINE
     Indication: Balance disorder
     Dosage: TAKE UP TO 3
     Dates: start: 20220510, end: 20220727
  12. SACUBITRIL [Concomitant]
     Active Substance: SACUBITRIL
     Dosage: FOR TREATING HEART FAILURE
     Dates: start: 20220818
  13. TEGRETOL [Concomitant]
     Active Substance: CARBAMAZEPINE
     Dates: start: 20220510, end: 20220719

REACTIONS (2)
  - Gastrointestinal disorder [Unknown]
  - Gastritis [Recovered/Resolved]

NARRATIVE: CASE EVENT DATE: 20220818
